FAERS Safety Report 9525773 (Version 1)
Quarter: 2013Q1

REPORT INFORMATION
  Report Type: Spontaneous
  Country: US (occurrence: None)
  Receive Date: 20130314
  Receipt Date: 20130314
  Transmission Date: 20140127
  Serious: Yes (Other)
  Sender: FDA-Public Use
  Company Number: 1302USA003730

PATIENT
  Age: 59 Year
  Sex: Male

DRUGS (3)
  1. VICTRELIS [Suspect]
     Indication: HEPATITIS C
     Dates: start: 20121211
  2. RIBAVIRIN [Suspect]
     Indication: HEPATITIS C
  3. PEGASYS [Suspect]

REACTIONS (9)
  - Leukopenia [None]
  - Rash generalised [None]
  - Abdominal distension [None]
  - Dyspepsia [None]
  - Gastrointestinal disorder [None]
  - Respiratory disorder [None]
  - Headache [None]
  - Pain [None]
  - White blood cell count decreased [None]
